FAERS Safety Report 22129733 (Version 1)
Quarter: 2023Q1

REPORT INFORMATION
  Report Type: Report from Study
  Country: MX (occurrence: MX)
  Receive Date: 20230323
  Receipt Date: 20230323
  Transmission Date: 20230417
  Serious: Yes (Other)
  Sender: FDA-Public Use
  Company Number: MX-002147023-NVSC2023MX063153

PATIENT
  Sex: Female
  Weight: 62 kg

DRUGS (1)
  1. ANASTROZOLE [Suspect]
     Active Substance: ANASTROZOLE
     Indication: Breast cancer
     Dosage: UNK (STOPPED -2 YEARS AGO)
     Route: 065

REACTIONS (2)
  - Metastases to bone [Unknown]
  - Aortic stenosis [Unknown]
